FAERS Safety Report 11030860 (Version 1)
Quarter: 2015Q2

REPORT INFORMATION
  Report Type: Spontaneous
  Country: PE (occurrence: PE)
  Receive Date: 20150415
  Receipt Date: 20150415
  Transmission Date: 20150821
  Serious: Yes (Hospitalization)
  Sender: FDA-Public Use
  Company Number: PE-PFIZER INC-2014334124

PATIENT
  Age: 65 Year
  Sex: Female

DRUGS (3)
  1. NORVASC [Suspect]
     Active Substance: AMLODIPINE BESYLATE
     Dosage: 5 MG, 1X/DAY
     Dates: start: 2013, end: 201412
  2. NORVASC [Suspect]
     Active Substance: AMLODIPINE BESYLATE
     Dosage: 5 MG, 1X/DAY
     Dates: start: 201412
  3. ILTUX [Concomitant]
     Dosage: UNK
     Dates: start: 2013

REACTIONS (1)
  - Bronchopneumonia [Recovered/Resolved]

NARRATIVE: CASE EVENT DATE: 201412
